FAERS Safety Report 8589708-4 (Version None)
Quarter: 2012Q3

REPORT INFORMATION
  Report Type: 
  Country: None (occurrence: None)
  Receive Date: 20120813
  Receipt Date: 20120802
  Transmission Date: 20120928
  Serious: Yes (Hospitalization, Other)
  Sender: FDA-Public Use
  Company Number: US-PFIZER INC-2012190594

PATIENT
  Age: 87 Year
  Sex: Female

DRUGS (2)
  1. ATENOLOL [Concomitant]
     Indication: HYPERTENSION
     Dosage: 25 MG, 2X/DAY
  2. PROCARDIA [Suspect]
     Indication: HYPERTENSION
     Dosage: 30 MG, AS NEEDED
     Route: 048
     Dates: end: 20110928

REACTIONS (8)
  - ABDOMINAL DISCOMFORT [None]
  - FAECES DISCOLOURED [None]
  - HYPERTENSION [None]
  - MYOCARDIAL INFARCTION [None]
  - ABDOMINAL PAIN UPPER [None]
  - NAUSEA [None]
  - DIZZINESS [None]
  - HEADACHE [None]
